FAERS Safety Report 7701565-4 (Version None)
Quarter: 2011Q3

REPORT INFORMATION
  Report Type: 
  Country: None (occurrence: None)
  Receive Date: 20110822
  Receipt Date: 20110812
  Transmission Date: 20111222
  Serious: Yes (Disabling)
  Sender: FDA-Public Use
  Company Number: GB-ASTRAZENECA-2011SE33683

PATIENT
  Age: 74 Year
  Sex: Female
  Weight: 68.2 kg

DRUGS (16)
  1. HYPROMELLOSE [Concomitant]
     Dates: start: 20110509
  2. HYPROMELLOSE [Concomitant]
     Dates: start: 20110221, end: 20110321
  3. OMEPRAZOLE [Concomitant]
     Indication: DYSPEPSIA
     Dates: start: 20110131, end: 20110228
  4. OMEPRAZOLE [Concomitant]
     Dates: start: 20110221, end: 20110321
  5. OMEPRAZOLE [Concomitant]
     Dates: start: 20110406, end: 20110504
  6. SALMETEROL [Concomitant]
     Dates: start: 20110131, end: 20110228
  7. AVEENO [Concomitant]
     Dates: start: 20110406, end: 20110407
  8. AVEENO [Concomitant]
     Dates: start: 20110509
  9. SALMETEROL [Concomitant]
     Dates: start: 20110308, end: 20110405
  10. SALMETEROL [Concomitant]
     Dates: start: 20110509
  11. ESOMEPRAZOLE MAGNESIUM [Suspect]
     Indication: DYSPEPSIA
     Route: 048
  12. ESOMEPRAZOLE MAGNESIUM [Suspect]
     Route: 048
     Dates: start: 20110414
  13. OMEPRAZOLE [Concomitant]
     Dates: start: 20110308, end: 20110405
  14. HYDROXYZINE [Concomitant]
     Dates: start: 20110509
  15. SALMETEROL [Concomitant]
     Dates: start: 20110406, end: 20110504
  16. AVEENO [Concomitant]
     Dates: start: 20110308, end: 20110309

REACTIONS (5)
  - SEDATION [None]
  - VISION BLURRED [None]
  - HEADACHE [None]
  - ANXIETY [None]
  - DIZZINESS [None]
